FAERS Safety Report 10078804 (Version 2)
Quarter: 2014Q2

REPORT INFORMATION
  Report Type: Spontaneous
  Country: GR (occurrence: GR)
  Receive Date: 20140415
  Receipt Date: 20140425
  Transmission Date: 20141212
  Serious: Yes (Hospitalization)
  Sender: FDA-Public Use
  Company Number: GR-NOVOPROD-406251

PATIENT
  Sex: Female
  Weight: 2.24 kg

DRUGS (3)
  1. NOVORAPID FLEXPEN [Suspect]
     Indication: GESTATIONAL DIABETES
     Dosage: 6 IU
     Route: 064
     Dates: start: 20140109
  2. NOVORAPID FLEXPEN [Suspect]
     Indication: GESTATIONAL DIABETES
     Dosage: 6 IU
     Route: 064
     Dates: start: 20140109
  3. T4 [Concomitant]
     Dosage: 125 MG, TID (1/MORNING AND 1/NOON AND 1/NIGHT)
     Route: 064

REACTIONS (2)
  - Premature baby [Unknown]
  - Foetal exposure during pregnancy [Unknown]
